FAERS Safety Report 19583545 (Version 1)
Quarter: 2021Q3

REPORT INFORMATION
  Report Type: Spontaneous
  Country: US (occurrence: US)
  Receive Date: 20210720
  Receipt Date: 20210720
  Transmission Date: 20211014
  Serious: Yes (Other)
  Sender: FDA-Public Use
  Company Number: None

PATIENT
  Age: 46 Year
  Sex: Female
  Weight: 68.4 kg

DRUGS (9)
  1. COPPERTONE PURE AND SIMPLE BABY SPF 50 (ZINC OXIDE) [Suspect]
     Active Substance: ZINC OXIDE
     Indication: PROPHYLAXIS AGAINST SOLAR RADIATION
     Route: 061
     Dates: start: 20210401, end: 20210711
  2. N?ACETYL L?TYROSINE [Concomitant]
  3. ASHWAGANDHA ROOT [Concomitant]
  4. GINSENG [Concomitant]
     Active Substance: ASIAN GINSENG
  5. VITAMIN D3 [Concomitant]
     Active Substance: CHOLECALCIFEROL
  6. MOUNTAIN PEAK ADRENAL B COMPLEX [Concomitant]
  7. INOSITOL [Concomitant]
     Active Substance: INOSITOL
  8. RHODIOLA ROSEA [Concomitant]
     Active Substance: HERBALS
  9. ASPIRIN 325 MG [Concomitant]
     Active Substance: ASPIRIN

REACTIONS (1)
  - Application site dermatitis [None]

NARRATIVE: CASE EVENT DATE: 20210712
